FAERS Safety Report 15074994 (Version 1)
Quarter: 2018Q2

REPORT INFORMATION
  Report Type: Spontaneous
  Country: US (occurrence: US)
  Receive Date: 20180627
  Receipt Date: 20180627
  Transmission Date: 20180711
  Serious: Yes (Other)
  Sender: FDA-Public Use
  Company Number: US-SAOL THERAPEUTICS-2017SAO01751

PATIENT
  Age: 44 Year
  Sex: Female

DRUGS (11)
  1. LIORESAL [Suspect]
     Active Substance: BACLOFEN
     Dosage: 210 ?G, \DAY
     Route: 037
     Dates: start: 20150814
  2. LIDODERM [Concomitant]
     Active Substance: LIDOCAINE
     Dosage: 3 DOSAGE UNITS, 1X/DAY
     Route: 061
  3. BACLOFEN. [Concomitant]
     Active Substance: BACLOFEN
     Dosage: 20 MG, 3X/DAY
     Route: 048
  4. MIRALAX [Concomitant]
     Active Substance: POLYETHYLENE GLYCOL 3350
  5. RESTORIL [Concomitant]
     Active Substance: TEMAZEPAM
  6. AMBIEN [Concomitant]
     Active Substance: ZOLPIDEM TARTRATE
  7. ZANAFLEX [Concomitant]
     Active Substance: TIZANIDINE HYDROCHLORIDE
  8. KEPPRA [Concomitant]
     Active Substance: LEVETIRACETAM
  9. VENLAFAXINE [Concomitant]
     Active Substance: VENLAFAXINE HYDROCHLORIDE
  10. NORCO [Concomitant]
     Active Substance: ACETAMINOPHEN\HYDROCODONE BITARTRATE
  11. VITAMIN B [Concomitant]
     Active Substance: VITAMIN B

REACTIONS (4)
  - Balance disorder [Unknown]
  - Complication associated with device [Not Recovered/Not Resolved]
  - Drug withdrawal syndrome [Not Recovered/Not Resolved]
  - Medical device site extravasation [Unknown]

NARRATIVE: CASE EVENT DATE: 20171030
